FAERS Safety Report 7463801-1 (Version None)
Quarter: 2011Q2

REPORT INFORMATION
  Report Type: 
  Country: None (occurrence: None)
  Receive Date: 20110428
  Receipt Date: 20110414
  Transmission Date: 20111010
  Serious: Yes (Other)
  Sender: FDA-Public Use
  Company Number: TRP_07682_2011

PATIENT
  Age: 42 Year
  Sex: Male

DRUGS (2)
  1. PEGYLATED INTERFERON ALFA-2A (PEGYLATED INTERFERON ALFA-2A) [Suspect]
     Indication: HEPATITIS C
     Dosage: 180 ?G 1X/WEEK, 180 ?G 1X/WEEK
  2. RIBAVIRIN [Suspect]
     Indication: HEPATITIS C
     Dosage: 1000 MG DAILY ORAL, 1000 MG, DAILY ORAL
     Route: 048

REACTIONS (8)
  - ASPARTATE AMINOTRANSFERASE INCREASED [None]
  - KIDNEY FIBROSIS [None]
  - INFLUENZA LIKE ILLNESS [None]
  - HAEMOGLOBIN DECREASED [None]
  - WHITE BLOOD CELL COUNT DECREASED [None]
  - ALANINE AMINOTRANSFERASE INCREASED [None]
  - RENAL TUBULAR ATROPHY [None]
  - FOCAL SEGMENTAL GLOMERULOSCLEROSIS [None]
